FAERS Safety Report 6072694-9 (Version None)
Quarter: 2009Q1

REPORT INFORMATION
  Report Type: 
  Country: None (occurrence: None)
  Receive Date: 20090210
  Receipt Date: 20090205
  Transmission Date: 20090719
  Serious: Yes (Death, Other)
  Sender: FDA-Public Use
  Company Number: US-CELGENEUS-163-21880-08101330

PATIENT
  Sex: Female

DRUGS (8)
  1. REVLIMID [Suspect]
     Indication: MULTIPLE MYELOMA
     Route: 048
     Dates: start: 20061201, end: 20070201
  2. REVLIMID [Suspect]
     Route: 048
     Dates: start: 20070228, end: 20070301
  3. REVLIMID [Suspect]
     Route: 048
     Dates: start: 20070404, end: 20070501
  4. REVLIMID [Suspect]
     Route: 048
     Dates: start: 20070504, end: 20070501
  5. REVLIMID [Suspect]
     Route: 048
     Dates: start: 20070529, end: 20070801
  6. REVLIMID [Suspect]
     Route: 048
     Dates: start: 20080606, end: 20080701
  7. REVLIMID [Suspect]
     Route: 048
     Dates: start: 20080911, end: 20080101
  8. ASPIRIN [Concomitant]
     Indication: DRUG USE FOR UNKNOWN INDICATION
     Route: 065

REACTIONS (3)
  - CELLULITIS [None]
  - MULTIPLE MYELOMA [None]
  - PANCYTOPENIA [None]
